FAERS Safety Report 7442565-1 (Version None)
Quarter: 2011Q2

REPORT INFORMATION
  Report Type: 
  Country: None (occurrence: None)
  Receive Date: 20110428
  Receipt Date: 20110419
  Transmission Date: 20111010
  Serious: Yes (Other)
  Sender: FDA-Public Use
  Company Number: US-AMGEN-USASP2011017418

PATIENT
  Age: 57 Year
  Sex: Female

DRUGS (3)
  1. ENBREL [Suspect]
     Indication: RHEUMATOID ARTHRITIS
     Dosage: 50 MG, QWK
     Dates: start: 20100226, end: 20100101
  2. ENBREL [Suspect]
     Indication: PSORIATIC ARTHROPATHY
  3. REMICADE [Concomitant]
     Dosage: 250 MG, UNK
     Route: 042
     Dates: start: 20110221, end: 20110419

REACTIONS (5)
  - NAUSEA [None]
  - INJECTION SITE ERYTHEMA [None]
  - INJECTION SITE RASH [None]
  - HEADACHE [None]
  - CERVICAL VERTEBRAL FRACTURE [None]
